FAERS Safety Report 24339557 (Version 1)
Quarter: 2024Q3

REPORT INFORMATION
  Report Type: Spontaneous
  Country: JP (occurrence: JP)
  Receive Date: 20240919
  Receipt Date: 20240919
  Transmission Date: 20241016
  Serious: No
  Sender: HELSINN HEALTHCARE
  Company Number: JP-HBP-2024JP031263

PATIENT
  Age: 64 Year
  Sex: Male
  Weight: 68.1 kg

DRUGS (18)
  1. ALOXI [Suspect]
     Active Substance: PALONOSETRON HYDROCHLORIDE
     Indication: Product used for unknown indication
     Dosage: 1 DOSAGE FORM, Q2WK
     Route: 041
     Dates: start: 20141105, end: 20150105
  2. OXALIPLATIN [Suspect]
     Active Substance: OXALIPLATIN
     Indication: Rectal cancer
     Dosage: 100 MILLIGRAM, Q2WK
     Route: 041
     Dates: start: 20140303, end: 20141203
  3. FLUOROURACIL [Suspect]
     Active Substance: FLUOROURACIL
     Indication: Rectal cancer
     Dosage: 3500 MILLIGRAM, Q2WK
     Route: 041
     Dates: start: 20140303
  4. LEVOLEUCOVORIN CALCIUM [Suspect]
     Active Substance: LEVOLEUCOVORIN CALCIUM
     Indication: Rectal cancer
     Dosage: 300 MILLIGRAM, Q2WK
     Route: 065
     Dates: start: 20140303
  5. AVASTIN [Suspect]
     Active Substance: BEVACIZUMAB
     Indication: Rectal cancer
     Dosage: 300 MILLIGRAM, Q2WK
     Route: 041
     Dates: start: 20140430
  6. CARVEDILOL [Concomitant]
     Active Substance: CARVEDILOL
     Indication: Cardiac failure chronic
     Dosage: 10 MILLIGRAM, Q12H
     Route: 048
     Dates: start: 20140619
  7. OXYCONTIN [Concomitant]
     Active Substance: OXYCODONE HYDROCHLORIDE
     Dosage: 10 MILLIGRAM, Q12H
     Route: 048
     Dates: start: 20141105
  8. GOODMIN [Concomitant]
     Active Substance: BROTIZOLAM
     Dosage: 0.25 MILLIGRAM, QD
     Route: 048
     Dates: start: 20141105
  9. LOXOPROFEN SODIUM [Concomitant]
     Active Substance: LOXOPROFEN SODIUM
     Dosage: 60 MILLIGRAM, Q8H
     Route: 048
     Dates: start: 20141105
  10. MAGNESIUM OXIDE [Concomitant]
     Active Substance: MAGNESIUM OXIDE
     Dosage: 2 GRAM, QD
     Route: 065
     Dates: start: 20141105
  11. SODIUM FERROUS CITRATE [Concomitant]
     Active Substance: SODIUM FERROUS CITRATE
     Dosage: 50 MILLIGRAM, Q12H
     Route: 048
     Dates: start: 20141105
  12. RABEPRAZOLE SODIUM [Concomitant]
     Active Substance: RABEPRAZOLE SODIUM
     Dosage: 20 MILLIGRAM, QD
     Route: 048
     Dates: start: 20141105
  13. DEXAMETHASONE SODIUM PHOSPHATE [Concomitant]
     Active Substance: DEXAMETHASONE PHOSPHATE\DEXAMETHASONE SODIUM PHOSPHATE
     Dosage: 9.9 MILLIGRAM, Q2WK
     Dates: start: 20141105, end: 20150105
  14. HEPARIN SODIUM [Concomitant]
     Active Substance: HEPARIN SODIUM
     Dosage: 5000 INTERNATIONAL UNIT, Q2WK
     Route: 041
     Dates: start: 20140303
  15. ELIETEN [METOCLOPRAMIDE HYDROCHLORIDE] [Concomitant]
     Dosage: 10 MILLIGRAM, QD
     Route: 042
     Dates: start: 20141217, end: 20141217
  16. IRINOTECAN HYDROCHLORIDE [Concomitant]
     Active Substance: IRINOTECAN HYDROCHLORIDE
     Indication: Rectal cancer
     Dosage: 200 MILLIGRAM, Q2WK
     Route: 041
     Dates: start: 20141217, end: 20150118
  17. AMLODIPINE BESYLATE [Concomitant]
     Active Substance: AMLODIPINE BESYLATE
     Dosage: 2.5 MILLIGRAM, QD
     Route: 048
     Dates: start: 20141127
  18. MICARDIS [Concomitant]
     Active Substance: TELMISARTAN
     Dosage: 40 MILLIGRAM, QD
     Route: 065
     Dates: start: 20141127, end: 20171120

REACTIONS (1)
  - Hypertension [Recovered/Resolved]

NARRATIVE: CASE EVENT DATE: 20141119
